FAERS Safety Report 19745699 (Version 1)
Quarter: 2021Q3

REPORT INFORMATION
  Report Type: Spontaneous
  Country: GB (occurrence: GB)
  Receive Date: 20210825
  Receipt Date: 20210825
  Transmission Date: 20211014
  Serious: Yes (Other)
  Sender: FDA-Public Use
  Company Number: GB-ABBVIE-21K-167-4054538-00

PATIENT

DRUGS (1)
  1. IMBRUVICA [Suspect]
     Active Substance: IBRUTINIB
     Indication: CHRONIC LYMPHOCYTIC LEUKAEMIA
     Route: 048
     Dates: start: 201601, end: 202005

REACTIONS (21)
  - Pseudomonas infection [Unknown]
  - Urinary tract infection [Unknown]
  - Proteus infection [Unknown]
  - Aspergillus infection [Unknown]
  - Candida infection [Unknown]
  - Staphylococcal infection [Unknown]
  - Ear infection [Unknown]
  - Myalgia [Unknown]
  - Stenotrophomonas infection [Unknown]
  - Serratia infection [Unknown]
  - Influenza [Unknown]
  - Headache [Unknown]
  - Haemophilus infection [Unknown]
  - Escherichia infection [Unknown]
  - Enterococcal infection [Unknown]
  - Chronic kidney disease [Unknown]
  - Lower respiratory tract infection [Unknown]
  - Nausea [Unknown]
  - Pneumonia streptococcal [Unknown]
  - Moraxella infection [Unknown]
  - Increased tendency to bruise [Unknown]
